FAERS Safety Report 10904377 (Version 4)
Quarter: 2018Q3

REPORT INFORMATION
  Report Type: Spontaneous
  Country: US (occurrence: US)
  Receive Date: 20150311
  Receipt Date: 20180904
  Transmission Date: 20181010
  Serious: Yes (Hospitalization, Other)
  Sender: FDA-Public Use
  Company Number: US-PFIZER INC-2015084191

PATIENT
  Age: 72 Year
  Sex: Female
  Weight: 64 kg

DRUGS (6)
  1. PREMARIN [Suspect]
     Active Substance: ESTROGENS, CONJUGATED
     Dosage: 1G (INSERT OR APPLY ONE G TO VAGINAL AREA THREE TIMES WEEKLY)
     Route: 067
  2. HYDRALAZINE [Concomitant]
     Active Substance: HYDRALAZINE HYDROCHLORIDE
     Indication: HYPERTENSION
     Dosage: 25 MG, 2X/DAY(ONE IN MORNING WITH AMLODIPINE, I TAKE ONE IN NIGHT WITH KEPPRA)
     Route: 048
  3. PREMARIN [Suspect]
     Active Substance: ESTROGENS, CONJUGATED
     Indication: CERVIX DISORDER
     Dosage: UNK, ONLY TWO TIMES
     Dates: start: 201308
  4. AMLODIPINE [Concomitant]
     Active Substance: AMLODIPINE BESYLATE
     Indication: HYPERTENSION
     Dosage: 2.5 MG, 1X/DAY (ONCE IN THE MORNING)
     Route: 048
  5. TYLENOL [Concomitant]
     Active Substance: ACETAMINOPHEN
     Indication: PAIN
     Dosage: 1000 MG, 2X/DAY (TWO OF THOSE IN THE MORNING TWO AT NIGHT)
     Route: 048
  6. KEPPRA [Concomitant]
     Active Substance: LEVETIRACETAM
     Dosage: UNK

REACTIONS (15)
  - Seizure [Unknown]
  - Loss of consciousness [Unknown]
  - Fluid retention [Unknown]
  - Cardiac disorder [Not Recovered/Not Resolved]
  - Cerebrovascular accident [Unknown]
  - Viral infection [Unknown]
  - Influenza [Unknown]
  - Weight increased [Unknown]
  - Joint swelling [Unknown]
  - Product use issue [Unknown]
  - Hypoacusis [Recovered/Resolved with Sequelae]
  - Herpes zoster [Unknown]
  - Thyroid disorder [Unknown]
  - Cystitis [Unknown]
  - Renal disorder [Unknown]

NARRATIVE: CASE EVENT DATE: 2013
